FAERS Safety Report 7207261-4 (Version None)
Quarter: 2011Q1

REPORT INFORMATION
  Report Type: 
  Country: None (occurrence: None)
  Receive Date: 20110103
  Receipt Date: 20101228
  Transmission Date: 20110831
  Serious: Yes (Hospitalization, Disabling)
  Sender: FDA-Public Use
  Company Number: FR-ROCHE-750757

PATIENT
  Sex: Male
  Weight: 90 kg

DRUGS (14)
  1. JANUVIA [Suspect]
     Route: 048
  2. AMAREL [Suspect]
     Route: 048
  3. DEPAKENE [Suspect]
     Route: 048
     Dates: start: 20101030, end: 20101030
  4. DEPAKENE [Suspect]
     Route: 048
  5. METFORMIN HCL [Suspect]
     Route: 048
  6. VOLTAREN [Concomitant]
  7. ZOLPIDEM [Concomitant]
  8. METFORMIN HCL [Suspect]
     Route: 048
     Dates: start: 20101030, end: 20101030
  9. VALSARTAN  AND HYDROCHLOROTHIAZIDE [Suspect]
     Route: 048
  10. JANUVIA [Suspect]
     Route: 048
     Dates: start: 20101030, end: 20101030
  11. VALSARTAN  AND HYDROCHLOROTHIAZIDE [Suspect]
     Route: 048
     Dates: start: 20101030, end: 20101030
  12. AMAREL [Suspect]
     Route: 048
     Dates: start: 20101030, end: 20101030
  13. RIVOTRIL [Suspect]
     Route: 048
     Dates: start: 20101030, end: 20101030
  14. RIVOTRIL [Suspect]
     Route: 048

REACTIONS (4)
  - GENERALISED OEDEMA [None]
  - HYPOGLYCAEMIA [None]
  - RENAL FAILURE ACUTE [None]
  - DEPRESSED LEVEL OF CONSCIOUSNESS [None]
